FAERS Safety Report 7779238-1 (Version None)
Quarter: 2011Q3

REPORT INFORMATION
  Report Type: 
  Country: None (occurrence: None)
  Receive Date: 20110926
  Receipt Date: 20110916
  Transmission Date: 20111222
  Serious: Yes (Other)
  Sender: FDA-Public Use
  Company Number: US-ASTRAZENECA-2011SE56089

PATIENT
  Age: 73 Year
  Sex: Female

DRUGS (2)
  1. ARICEPT [Concomitant]
  2. CRESTOR [Suspect]
     Route: 048

REACTIONS (1)
  - DEMENTIA [None]
